FAERS Safety Report 4658916-7 (Version None)
Quarter: 2005Q2

REPORT INFORMATION
  Report Type: 
  Country: None (occurrence: None)
  Receive Date: 20050509
  Receipt Date: 20050426
  Transmission Date: 20051028
  Serious: Yes (Other)
  Sender: FDA-Public Use
  Company Number: 2005066749

PATIENT
  Age: 42 Year
  Sex: Male
  Weight: 102.0593 kg

DRUGS (3)
  1. BEXTRA [Suspect]
     Indication: ARTHROPATHY
     Dosage: 20 MG (20 MG, 1 IN 1 D), ORAL
     Route: 048
     Dates: start: 20040319, end: 20040612
  2. CELEBREX [Suspect]
     Indication: ARTHRALGIA
     Dosage: ORAL
     Route: 048
     Dates: start: 20040614, end: 20040624
  3. FEXOFENADINE HYDROCHLORIDE [Concomitant]

REACTIONS (5)
  - DIVORCED [None]
  - FEELING ABNORMAL [None]
  - GASTROINTESTINAL DISORDER [None]
  - HYPERTENSION [None]
  - PAIN [None]
